FAERS Safety Report 6073298-4 (Version None)
Quarter: 2009Q1

REPORT INFORMATION
  Report Type: 
  Country: None (occurrence: None)
  Receive Date: 20090211
  Receipt Date: 20090129
  Transmission Date: 20090719
  Serious: Yes (Other)
  Sender: FDA-Public Use
  Company Number: PHEH2009US01285

PATIENT
  Sex: Female
  Weight: 38.549 kg

DRUGS (5)
  1. DIOVAN [Suspect]
     Indication: HYPERTENSION
     Dosage: 20 MG, QD
  2. DIOVAN [Suspect]
     Indication: EJECTION FRACTION
  3. DIGOXIN [Suspect]
     Dosage: 0.125 MCG QD
     Route: 048
  4. MAGNESIUM SULFATE [Concomitant]
     Dosage: 200 MG, BID
  5. ASPIRIN [Concomitant]
     Dosage: 81 MG, QD
     Route: 048

REACTIONS (4)
  - CARDIAC FAILURE CONGESTIVE [None]
  - CONDITION AGGRAVATED [None]
  - HYPERHIDROSIS [None]
  - TACHYCARDIA [None]
